FAERS Safety Report 4617199-4 (Version None)
Quarter: 2005Q1

REPORT INFORMATION
  Report Type: 
  Country: None (occurrence: None)
  Receive Date: 20050323
  Receipt Date: 20041202
  Transmission Date: 20050727
  Serious: Yes (Death, Hospitalization, Other)
  Sender: FDA-Public Use
  Company Number: PHEH2004US12965

PATIENT
  Age: 79 Year
  Sex: Male

DRUGS (4)
  1. EPOETIN ALFA [Concomitant]
     Dosage: 40000 U UNK
     Dates: start: 20020926
  2. LEUPROLIDE ACETATE [Concomitant]
     Dosage: UNK, UNK
     Dates: start: 19970127, end: 20031128
  3. DOCETAXEL [Concomitant]
     Dosage: 58MG UNK
     Dates: start: 20030103
  4. ZOMETA [Suspect]
     Indication: PROSTATE CANCER
     Dosage: 4 MG (FREQUENCY UNSPECIFIED)
     Route: 042
     Dates: start: 20021220, end: 20040701

REACTIONS (13)
  - ABSCESS [None]
  - BONE DISORDER [None]
  - CARDIO-RESPIRATORY ARREST [None]
  - DENTAL OPERATION [None]
  - OSTEOLYSIS [None]
  - OSTEOMYELITIS [None]
  - OSTEONECROSIS [None]
  - PAIN [None]
  - PATHOLOGICAL FRACTURE [None]
  - RESPIRATORY THERAPY [None]
  - SEPSIS [None]
  - SEQUESTRECTOMY [None]
  - SWELLING [None]
